FAERS Safety Report 7896828-6 (Version None)
Quarter: 2011Q4

REPORT INFORMATION
  Report Type: 
  Country: None (occurrence: None)
  Receive Date: 20111107
  Receipt Date: 20111028
  Transmission Date: 20120403
  Serious: Yes (Hospitalization)
  Sender: FDA-Public Use
  Company Number: US-BIOGENIDEC-2011BI036190

PATIENT
  Age: 57 Year
  Sex: Female

DRUGS (3)
  1. AVONEX [Suspect]
     Indication: MULTIPLE SCLEROSIS
     Route: 030
     Dates: start: 20030501
  2. AVONEX [Suspect]
     Route: 030
     Dates: start: 20060103, end: 20110902
  3. LEVOTHYROXINE SODIUM [Concomitant]

REACTIONS (5)
  - HYPOTHYROIDISM [None]
  - GOITRE [None]
  - MULTIPLE SCLEROSIS [None]
  - MULTIPLE SCLEROSIS RELAPSE [None]
  - BACK PAIN [None]
